FAERS Safety Report 7847490-X (Version None)
Quarter: 2011Q4

REPORT INFORMATION
  Report Type: 
  Country: None (occurrence: None)
  Receive Date: 20111025
  Receipt Date: 20111003
  Transmission Date: 20120403
  Serious: Yes (Hospitalization, Other)
  Sender: FDA-Public Use
  Company Number: US-ROCHE-1002589

PATIENT
  Sex: Female

DRUGS (10)
  1. HERCEPTIN [Suspect]
     Indication: BREAST CANCER
     Dosage: OVER 90 MIN FOR 1 WEEK
     Route: 042
     Dates: start: 20090212
  2. HERCEPTIN [Suspect]
     Dosage: OVER 30 MIN FOR 12WEEKS
     Route: 042
  3. HERCEPTIN [Suspect]
     Dosage: 3 WEEKS
     Route: 042
  4. HERCEPTIN [Suspect]
     Dosage: OVER 60 MIN CONTINUED TILL 52 WEEKS FROM FIRST PRESCRIPTION.
     Route: 042
  5. CYCLOPHOSPHAMIDE [Suspect]
     Indication: BREAST CANCER
     Dosage: OVER 30 MIN ON DAY 1
     Route: 042
     Dates: start: 20101002
  6. FLUOROURACIL [Suspect]
     Indication: BREAST CANCER
     Dosage: ON DAY 1 ROUTE IVP
     Dates: start: 20101002
  7. EPIRUBICIN HYDROCHLORIDE [Suspect]
     Indication: BREAST CANCER
     Dosage: OVER 15 MIN ON DAY 1
     Route: 042
     Dates: start: 20101002
  8. HERCEPTIN [Suspect]
     Dosage: OVER 30 MIN DURING SUSEQUENT 12 WEEKS
     Route: 042
  9. HERCEPTIN [Suspect]
     Dosage: FOR 21 CYCLE
  10. PACLITAXEL [Suspect]
     Indication: BREAST CANCER
     Dosage: OVER 60 MIN WEEKLY
     Route: 042
     Dates: start: 20090212

REACTIONS (8)
  - HYPERALBUMINAEMIA [None]
  - HYPOTENSION [None]
  - PLATELET COUNT DECREASED [None]
  - LUNG INFECTION [None]
  - NEUTROPHIL COUNT DECREASED [None]
  - ANAEMIA [None]
  - MYOCARDIAL INFARCTION [None]
  - WHITE BLOOD CELL COUNT DECREASED [None]
